APPROVED DRUG PRODUCT: THEO-24
Active Ingredient: THEOPHYLLINE
Strength: 300MG
Dosage Form/Route: CAPSULE, EXTENDED RELEASE;ORAL
Application: A087943 | Product #003
Applicant: ENDO OPERATIONS LTD
Approved: Aug 22, 1983 | RLD: No | RS: No | Type: RX